FAERS Safety Report 8399184-2 (Version None)
Quarter: 2012Q2

REPORT INFORMATION
  Report Type: 
  Country: None (occurrence: None)
  Receive Date: 20120531
  Receipt Date: 20120522
  Transmission Date: 20120825
  Serious: Yes (Hospitalization, Other)
  Sender: FDA-Public Use
  Company Number: US-JNJFOC-20120500633

PATIENT
  Sex: Male
  Weight: 92.99 kg

DRUGS (11)
  1. REMICADE [Suspect]
     Route: 042
  2. REMICADE [Suspect]
     Indication: RHEUMATOID ARTHRITIS
     Route: 042
     Dates: start: 20120416
  3. REMICADE [Suspect]
     Route: 042
     Dates: start: 20120416
  4. REMICADE [Suspect]
     Route: 042
     Dates: start: 20120329
  5. IBUPROFEN (ADVIL) [Concomitant]
     Indication: PAIN
     Route: 065
  6. REMICADE [Suspect]
     Indication: CROHN'S DISEASE
     Route: 042
  7. TYLENOL [Concomitant]
     Indication: PREMEDICATION
     Route: 048
  8. REMICADE [Suspect]
     Route: 042
     Dates: start: 20120329
  9. IRBESARTAN AND HYDROCHLOROTHIAZIDE [Concomitant]
     Indication: BLOOD PRESSURE
     Route: 065
  10. TYLENOL [Concomitant]
     Indication: PAIN
     Route: 048
  11. BENADRYL [Concomitant]
     Indication: PREMEDICATION
     Route: 048

REACTIONS (7)
  - PAIN [None]
  - CHEST PAIN [None]
  - PRURITUS [None]
  - TRISMUS [None]
  - INFUSION RELATED REACTION [None]
  - PAIN IN EXTREMITY [None]
  - DIZZINESS [None]
